FAERS Safety Report 8054365 (Version 9)
Quarter: 2013Q1

REPORT INFORMATION
  Report Type: Spontaneous
  Country: US (occurrence: US)
  Receive Date: 20110726
  Receipt Date: 20130311
  Transmission Date: 20140127
  Serious: Yes (Hospitalization, Other)
  Sender: FDA-Public Use
  Company Number: PHHY2011US63361

PATIENT
  Age: 84 Year
  Sex: Female

DRUGS (6)
  1. EXFORGE [Suspect]
     Dosage: 1 DF, QD (160 MG VALS AND 5 MG AMLO)
     Route: 048
  2. LYRICA [Suspect]
  3. ZETIA [Suspect]
  4. VITAMINS NOS [Concomitant]
  5. CALCIUM [Concomitant]
  6. PLAVIX [Concomitant]
     Dosage: UNK UKN, UNK

REACTIONS (12)
  - Fall [Unknown]
  - Ankle fracture [Unknown]
  - Pneumonia [Unknown]
  - Cerebrovascular accident [Unknown]
  - Back pain [Unknown]
  - Pain in extremity [Unknown]
  - Burning sensation [Unknown]
  - Weight decreased [Unknown]
  - Gait disturbance [Unknown]
  - Limb discomfort [Unknown]
  - Amnesia [Unknown]
  - Increased appetite [Unknown]
